FAERS Safety Report 9650786 (Version 1)
Quarter: 2013Q4

REPORT INFORMATION
  Report Type: Spontaneous
  Country: US (occurrence: None)
  Receive Date: 20131025
  Receipt Date: 20131025
  Transmission Date: 20140711
  Serious: Yes (Hospitalization)
  Sender: FDA-Public Use
  Company Number: None

PATIENT
  Age: 46 Year
  Sex: Female
  Weight: 78.02 kg

DRUGS (3)
  1. PARAGARD [Suspect]
     Indication: CONTRACEPTION
  2. OMEPRAZOLE [Concomitant]
  3. ZYRTEC [Concomitant]

REACTIONS (5)
  - Embedded device [None]
  - Complication of device removal [None]
  - Device dislocation [None]
  - Scar [None]
  - Device breakage [None]
